FAERS Safety Report 15947888 (Version 1)
Quarter: 2019Q1

REPORT INFORMATION
  Report Type: Spontaneous
  Country: CN (occurrence: CN)
  Receive Date: 20190211
  Receipt Date: 20190211
  Transmission Date: 20190417
  Serious: Yes (Other)
  Sender: FDA-Public Use
  Company Number: CN-ASTELLAS-2019US005225

PATIENT
  Age: 73 Year
  Sex: Male

DRUGS (4)
  1. ERLOTINIB [Suspect]
     Active Substance: ERLOTINIB
     Indication: LUNG ADENOCARCINOMA
     Route: 048
     Dates: start: 201512
  2. LOBAPLATIN [Concomitant]
     Active Substance: LOBAPLATIN
     Indication: PRODUCT USED FOR UNKNOWN INDICATION
     Dosage: AT DAY1
     Route: 065
     Dates: start: 20170106
  3. CRIZOTINIB [Concomitant]
     Active Substance: CRIZOTINIB
     Indication: LUNG ADENOCARCINOMA
     Dosage: UNK, UNKNOWN FREQ.
     Route: 065
     Dates: start: 201703
  4. PEMETREXED. [Concomitant]
     Active Substance: PEMETREXED
     Indication: PRODUCT USED FOR UNKNOWN INDICATION
     Dosage: AT DAY1
     Route: 065
     Dates: start: 20170106

REACTIONS (2)
  - Cerebral ischaemia [Unknown]
  - Sinusitis [Unknown]
